FAERS Safety Report 8345029-6 (Version None)
Quarter: 2012Q2

REPORT INFORMATION
  Report Type: 
  Country: None (occurrence: None)
  Receive Date: 20120508
  Receipt Date: 20120425
  Transmission Date: 20120825
  Serious: Yes (Death, Life-Threatening, Hospitalization)
  Sender: FDA-Public Use
  Company Number: US-ACTELION-A-NJ2012-61002

PATIENT

DRUGS (4)
  1. OXYGEN [Concomitant]
  2. EPOPROSTENOL SODIUM [Suspect]
     Indication: PULMONARY ARTERIAL HYPERTENSION
     Dosage: 8 NG/KG, PER MIN
     Route: 041
     Dates: start: 20120110
  3. EPOPROSTENOL SODIUM [Suspect]
     Dosage: 16 NG/KG, PER MIN
     Route: 041
     Dates: end: 20120424
  4. VENTAVIS [Concomitant]
     Indication: PULMONARY ARTERIAL HYPERTENSION
     Dosage: UNK
     Route: 055
     Dates: start: 20111222, end: 20120123

REACTIONS (10)
  - FLUID OVERLOAD [None]
  - DYSPNOEA [None]
  - PYREXIA [None]
  - DIARRHOEA [None]
  - VOMITING [None]
  - DISEASE PROGRESSION [None]
  - DECREASED APPETITE [None]
  - PULMONARY ARTERIAL HYPERTENSION [None]
  - DEHYDRATION [None]
  - NAUSEA [None]
